FAERS Safety Report 9318630 (Version 1)
Quarter: 2013Q2

REPORT INFORMATION
  Report Type: Spontaneous
  Country: GB (occurrence: None)
  Receive Date: 20130524
  Receipt Date: 20130524
  Transmission Date: 20140414
  Serious: Yes (Hospitalization)
  Sender: FDA-Public Use
  Company Number: 2013P1006354

PATIENT
  Age: 84 Year
  Sex: Female

DRUGS (6)
  1. LANOXIN [Suspect]
     Indication: ATRIAL FIBRILLATION
     Route: 048
     Dates: end: 20100813
  2. SUNVASTATUB [Concomitant]
  3. FRUSEMIDE [Concomitant]
  4. PREGABALIN [Concomitant]
  5. SODIUM [Concomitant]
  6. RABEPRAZOLE [Concomitant]

REACTIONS (2)
  - Bradycardia [None]
  - Syncope [None]
